FAERS Safety Report 9508349 (Version 1)
Quarter: 2013Q3

REPORT INFORMATION
  Report Type: Spontaneous
  Country: US (occurrence: US)
  Receive Date: 20130909
  Receipt Date: 20130909
  Transmission Date: 20140515
  Serious: No
  Sender: FDA-Public Use
  Company Number: US-PFIZER INC-2013255392

PATIENT
  Age: 60 Year
  Sex: Male
  Weight: 80.74 kg

DRUGS (8)
  1. MOTRIN IB [Suspect]
     Dosage: UNK
     Route: 048
  2. LOSARTAN [Concomitant]
     Indication: HYPERTENSION
     Dosage: 25 MG, UNK
  3. PRAVASTATIN [Concomitant]
     Indication: BLOOD CHOLESTEROL INCREASED
     Dosage: 40 MG, UNK
  4. CENTRUM SILVER [Concomitant]
     Dosage: UNK
  5. VITAMIN D3 [Concomitant]
     Dosage: 2000 IU, UNK
  6. CALTRATE [Concomitant]
     Dosage: 1 DF, UNK
  7. FISH OIL [Concomitant]
     Dosage: 2 DF, UNK
  8. VITAMIN C [Concomitant]
     Dosage: 250 MG, UNK

REACTIONS (3)
  - Hypersensitivity [Recovered/Resolved]
  - Rash [Recovered/Resolved]
  - Flushing [Recovered/Resolved]
